FAERS Safety Report 23406832 (Version 1)
Quarter: 2024Q1

REPORT INFORMATION
  Report Type: Spontaneous
  Country: CN (occurrence: None)
  Receive Date: 20240116
  Receipt Date: 20240116
  Transmission Date: 20240410
  Serious: Yes (Hospitalization)
  Sender: FDA-Public Use
  Company Number: CN-ROCHE-3490803

PATIENT
  Age: 71 Year
  Sex: Male

DRUGS (4)
  1. POLIVY [Suspect]
     Active Substance: POLATUZUMAB VEDOTIN-PIIQ
     Indication: Lymphoma
     Dosage: POLATUZUMAB VEDOTIN + RITUXIMAB + CYCLOPHOSPHAMIDE + DOXORUBICIN
     Route: 065
     Dates: start: 202309
  2. MABTHERA [Suspect]
     Active Substance: RITUXIMAB
     Indication: Lymphoma
     Dosage: POLATUZUMAB VEDOTIN + RITUXIMAB + CYCLOPHOSPHAMIDE + DOXORUBICIN
     Route: 065
     Dates: start: 202309
  3. CYCLOPHOSPHAMIDE [Concomitant]
     Active Substance: CYCLOPHOSPHAMIDE
     Indication: Lymphoma
     Dosage: POLATUZUMAB VEDOTIN + RITUXIMAB + CYCLOPHOSPHAMIDE + DOXORUBICIN
     Dates: start: 202309
  4. DOXORUBICIN [Concomitant]
     Active Substance: DOXORUBICIN
     Indication: Lymphoma
     Dosage: POLATUZUMAB VEDOTIN + RITUXIMAB + CYCLOPHOSPHAMIDE + DOXORUBICIN
     Dates: start: 202309

REACTIONS (1)
  - Interstitial lung disease [Unknown]
